FAERS Safety Report 23824204 (Version 7)
Quarter: 2025Q4

REPORT INFORMATION
  Report Type: Report from Study
  Country: US (occurrence: None)
  Receive Date: 20240507
  Receipt Date: 20251121
  Transmission Date: 20260117
  Serious: Yes (Other)
  Sender: UCB
  Company Number: US-UCBSA-2024021928

PATIENT
  Age: 15 Year
  Weight: 65.9 kg

DRUGS (11)
  1. FENFLURAMINE [Suspect]
     Active Substance: FENFLURAMINE
     Indication: Severe myoclonic epilepsy of infancy
     Dosage: 4.9 MILLILITER, 2X/DAY (BID)
  2. FENFLURAMINE [Suspect]
     Active Substance: FENFLURAMINE
     Dosage: 0.23 MILLIGRAM/KILOGRAM/DAY
  3. FENFLURAMINE [Suspect]
     Active Substance: FENFLURAMINE
     Dosage: 0.2 MILLIGRAM/KILOGRAM/DAY
  4. FENFLURAMINE [Suspect]
     Active Substance: FENFLURAMINE
     Dosage: 0.22 MILLIGRAM/KILOGRAM/DAY
  5. FENFLURAMINE [Suspect]
     Active Substance: FENFLURAMINE
     Dosage: 0.39 MILLIGRAM/KILOGRAM/DAY
  6. FENFLURAMINE [Suspect]
     Active Substance: FENFLURAMINE
     Dosage: 0.40 MILLIGRAM/KILOGRAM/DAILY
  7. FENFLURAMINE [Suspect]
     Active Substance: FENFLURAMINE
     Dosage: 0.32 MILLIGRAM/KILOGRAM/DAY
  8. FENFLURAMINE [Suspect]
     Active Substance: FENFLURAMINE
     Dosage: 4.9 MILLILITER, 2X/DAY (BID)
  9. FENFLURAMINE [Suspect]
     Active Substance: FENFLURAMINE
     Dosage: REDUCED DOSE: 0.32 MILLIGRAM/KILOGRAM, ONCE DAILY (QD)
  10. FENFLURAMINE [Suspect]
     Active Substance: FENFLURAMINE
     Dosage: 21.6 MILLIGRAM PER DAY
  11. FENFLURAMINE [Suspect]
     Active Substance: FENFLURAMINE
     Dosage: 21.56 MG/DAY

REACTIONS (3)
  - Seizure [Not Recovered/Not Resolved]
  - Mitral valve thickening [Not Recovered/Not Resolved]
  - Heart valve incompetence [Not Recovered/Not Resolved]
